FAERS Safety Report 10192372 (Version 2)
Quarter: 2014Q2

REPORT INFORMATION
  Report Type: Spontaneous
  Country: JP (occurrence: JP)
  Receive Date: 20140523
  Receipt Date: 20140523
  Transmission Date: 20141212
  Serious: Yes (Hospitalization)
  Sender: FDA-Public Use
  Company Number: JP-DSJP-DSJ-2014-04178

PATIENT
  Sex: 0

DRUGS (9)
  1. OLMETEC [Suspect]
     Indication: HYPERTENSION
     Route: 048
     Dates: end: 20121217
  2. ISENTRESS [Suspect]
     Indication: HIV INFECTION
     Dosage: EVERY
     Route: 048
     Dates: start: 20110615
  3. INTELENCE [Suspect]
     Indication: HIV INFECTION
     Dosage: EVERY
     Route: 048
     Dates: start: 20110615
  4. CELSENTRI [Suspect]
     Indication: HIV INFECTION
     Dosage: EVERY
     Route: 048
     Dates: start: 20110615
  5. TAMBOCOR [Concomitant]
     Indication: ATRIAL FIBRILLATION
     Route: 065
     Dates: end: 20130107
  6. AMLODIN [Concomitant]
     Indication: HYPERTENSION
     Route: 048
  7. ALOSITOL [Concomitant]
     Indication: HYPERURICAEMIA
     Route: 048
  8. BAYASPIRIN [Concomitant]
     Indication: CEREBRAL INFARCTION
     Route: 048
  9. LASIX                              /00032601/ [Concomitant]
     Indication: HYPERKALAEMIA
     Route: 065

REACTIONS (5)
  - Vitreous haemorrhage [Recovered/Resolved]
  - Glaucoma [Not Recovered/Not Resolved]
  - Lenticular operation [Unknown]
  - Vitrectomy [Unknown]
  - Hyperkalaemia [Recovered/Resolved]
